FAERS Safety Report 23510102 (Version 1)
Quarter: 2024Q1

REPORT INFORMATION
  Report Type: Spontaneous
  Country: US (occurrence: US)
  Receive Date: 20240211
  Receipt Date: 20240211
  Transmission Date: 20240410
  Serious: No
  Sender: FDA-Public Use
  Company Number: US-SA-SAC20240205000773

PATIENT
  Sex: Female

DRUGS (9)
  1. DUPIXENT [Suspect]
     Active Substance: DUPILUMAB
     Indication: Eosinophilic oesophagitis
     Dosage: 300 MG, QW
     Route: 058
     Dates: start: 20230114
  2. FLUTICASONE [Concomitant]
     Active Substance: FLUTICASONE
  3. IRON [Concomitant]
     Active Substance: IRON
  4. LORATADINE [Concomitant]
     Active Substance: LORATADINE
  5. MIRENA [Concomitant]
     Active Substance: LEVONORGESTREL
  6. MONTELUKAST [Concomitant]
     Active Substance: MONTELUKAST SODIUM
  7. PEPCID [Concomitant]
     Active Substance: FAMOTIDINE
  8. VENTOLIN HFA [Concomitant]
     Active Substance: ALBUTEROL SULFATE
  9. STOOL SOFTENER (DOCUSATE) [Concomitant]
     Active Substance: DOCUSATE

REACTIONS (3)
  - Infection [Unknown]
  - Influenza [Unknown]
  - Drug ineffective [Unknown]
